FAERS Safety Report 8834318 (Version 1)
Quarter: 2012Q4

REPORT INFORMATION
  Report Type: 
  Country: FR (occurrence: FR)
  Receive Date: 20121010
  Receipt Date: 20121010
  Transmission Date: 20130627
  Serious: Yes (Hospitalization)
  Sender: FDA-Public Use
  Company Number: FR-BAXTER-2012BAX018881

PATIENT
  Age: 71 Year
  Sex: Male

DRUGS (5)
  1. HOLOXAN [Suspect]
     Indication: NEUROFIBROSARCOMA RECURRENT
     Route: 042
     Dates: start: 20120824
  2. HOLOXAN [Suspect]
     Route: 042
     Dates: start: 20120912, end: 20120914
  3. AMIKACINE MYLAN [Suspect]
     Indication: SEPSIS
     Dosage: 20 mg/kg/day
     Route: 042
     Dates: start: 20120917, end: 20120917
  4. UROMITEXAN [Concomitant]
     Indication: DRUG USE FOR UNKNOWN INDICATION
     Route: 065
     Dates: start: 20120824
  5. UROMITEXAN [Concomitant]
     Route: 065
     Dates: start: 20120912, end: 20120914

REACTIONS (2)
  - Renal failure acute [Not Recovered/Not Resolved]
  - Septic shock [Unknown]
